FAERS Safety Report 13097289 (Version 1)
Quarter: 2017Q1

REPORT INFORMATION
  Report Type: Spontaneous
  Country: US (occurrence: US)
  Receive Date: 20170109
  Receipt Date: 20170109
  Transmission Date: 20170428
  Serious: No
  Sender: FDA-Public Use
  Company Number: US-BAYER-2017-002985

PATIENT
  Age: 61 Year
  Sex: Female

DRUGS (1)
  1. EOVIST [Suspect]
     Active Substance: GADOXETATE DISODIUM
     Indication: NUCLEAR MAGNETIC RESONANCE IMAGING LIVER
     Dosage: UNK UNK, ONCE
     Route: 042
     Dates: start: 20161229, end: 20161229

REACTIONS (2)
  - Panic attack [Recovered/Resolved]
  - Nausea [Recovered/Resolved]
